FAERS Safety Report 11507700 (Version 1)
Quarter: 2015Q3

REPORT INFORMATION
  Report Type: Spontaneous
  Country: US (occurrence: None)
  Receive Date: 20150914
  Receipt Date: 20150914
  Transmission Date: 20151125
  Serious: Yes (Other)
  Sender: FDA-Public Use
  Company Number: None

PATIENT
  Age: 26 Year
  Sex: Male
  Weight: 77.11 kg

DRUGS (3)
  1. VITAMIN B12 [Concomitant]
     Active Substance: CYANOCOBALAMIN
  2. ALLEGRA [Suspect]
     Active Substance: FEXOFENADINE HYDROCHLORIDE
     Indication: COUGH
     Dosage: AS NEEDED TAKEN BY MOUTH
     Route: 048
     Dates: start: 20150912, end: 20150912
  3. VITAMIN D [Concomitant]
     Active Substance: CHOLECALCIFEROL

REACTIONS (16)
  - Insomnia [None]
  - Dyskinesia [None]
  - Dizziness [None]
  - Anxiety [None]
  - Diarrhoea [None]
  - Headache [None]
  - Restlessness [None]
  - Abdominal discomfort [None]
  - Confusional state [None]
  - Hunger [None]
  - Paraesthesia [None]
  - Palpitations [None]
  - Dry mouth [None]
  - Hallucination [None]
  - Chills [None]
  - Tremor [None]

NARRATIVE: CASE EVENT DATE: 20150912
